FAERS Safety Report 7770760-0 (Version None)
Quarter: 2011Q3

REPORT INFORMATION
  Report Type: 
  Country: None (occurrence: None)
  Receive Date: 20110922
  Receipt Date: 20110307
  Transmission Date: 20111222
  Serious: No
  Sender: FDA-Public Use
  Company Number: US-ASTRAZENECA-2011SE12456

PATIENT
  Age: 56 Year
  Sex: Male

DRUGS (5)
  1. SEROQUEL [Suspect]
     Indication: BIPOLAR DISORDER
     Route: 048
     Dates: start: 20100101
  2. ZOLOFT [Concomitant]
  3. SEROQUEL [Suspect]
     Dosage: TAKEN ONLY ONE DOSE PER DAY INSTED OF TWICE DAILY
     Route: 048
  4. SEROQUEL [Suspect]
     Indication: DEPRESSION
     Route: 048
     Dates: start: 20100101
  5. SEROQUEL [Suspect]
     Dosage: TAKEN ONLY ONE DOSE PER DAY INSTED OF TWICE DAILY
     Route: 048

REACTIONS (2)
  - INCORRECT DOSE ADMINISTERED [None]
  - INFLUENZA LIKE ILLNESS [None]
